FAERS Safety Report 22386221 (Version 2)
Quarter: 2023Q2

REPORT INFORMATION
  Report Type: Spontaneous
  Country: HK (occurrence: HK)
  Receive Date: 20230530
  Receipt Date: 20230601
  Transmission Date: 20230722
  Serious: Yes (Life-Threatening, Hospitalization, Other)
  Sender: FDA-Public Use
  Company Number: HK-MLMSERVICE-20230512-3858132-1

PATIENT
  Age: 14 Year
  Sex: Male

DRUGS (29)
  1. CLOBAZAM [Suspect]
     Active Substance: CLOBAZAM
     Indication: Movement disorder
     Route: 065
  2. CLOBAZAM [Suspect]
     Active Substance: CLOBAZAM
     Indication: Epilepsy
  3. CLOBAZAM [Suspect]
     Active Substance: CLOBAZAM
     Indication: Intellectual disability
  4. TETRABENAZINE [Suspect]
     Active Substance: TETRABENAZINE
     Indication: Movement disorder
     Route: 065
  5. TETRABENAZINE [Suspect]
     Active Substance: TETRABENAZINE
     Indication: Epilepsy
  6. TETRABENAZINE [Suspect]
     Active Substance: TETRABENAZINE
     Indication: Intellectual disability
  7. CARBAMAZEPINE [Suspect]
     Active Substance: CARBAMAZEPINE
     Indication: Movement disorder
     Route: 065
  8. CARBAMAZEPINE [Suspect]
     Active Substance: CARBAMAZEPINE
     Indication: Epilepsy
  9. CARBAMAZEPINE [Suspect]
     Active Substance: CARBAMAZEPINE
     Indication: Intellectual disability
  10. CLONIDINE [Suspect]
     Active Substance: CLONIDINE
     Indication: Sedation
     Dosage: 0.58 UG/KG, TID
     Route: 048
  11. CLONIDINE [Suspect]
     Active Substance: CLONIDINE
     Indication: Dystonia
     Dosage: 0.05 MG, Q6H
     Route: 048
  12. CLONIDINE [Suspect]
     Active Substance: CLONIDINE
     Indication: Dyskinesia
     Route: 048
  13. DIAZEPAM [Suspect]
     Active Substance: DIAZEPAM
     Indication: Sedative therapy
     Route: 048
  14. MIDAZOLAM [Suspect]
     Active Substance: MIDAZOLAM
     Indication: Sedation
     Dosage: 0.2 MG/KG, QH
     Route: 041
  15. MIDAZOLAM [Suspect]
     Active Substance: MIDAZOLAM
     Indication: Dystonia
  16. MIDAZOLAM [Suspect]
     Active Substance: MIDAZOLAM
     Indication: Dyskinesia
  17. BACLOFEN [Suspect]
     Active Substance: BACLOFEN
     Indication: Movement disorder
     Route: 065
  18. BACLOFEN [Suspect]
     Active Substance: BACLOFEN
     Indication: Epilepsy
  19. BACLOFEN [Suspect]
     Active Substance: BACLOFEN
     Indication: Intellectual disability
  20. CHLORAL HYDRATE [Suspect]
     Active Substance: CHLORAL HYDRATE
     Indication: Sedation
     Dosage: 23 MG/KG, Q6H
     Route: 048
  21. CHLORAL HYDRATE [Suspect]
     Active Substance: CHLORAL HYDRATE
     Indication: Dystonia
     Dosage: 500 MG, QD
     Route: 048
  22. CHLORAL HYDRATE [Suspect]
     Active Substance: CHLORAL HYDRATE
     Indication: Dyskinesia
  23. DEXMEDETOMIDINE [Suspect]
     Active Substance: DEXMEDETOMIDINE
     Indication: Sedation
     Dosage: 0.3 UG/KG, QH
     Route: 041
  24. MORPHINE [Suspect]
     Active Substance: MORPHINE
     Indication: Sedation
     Dosage: 20 UG/KG, QH
     Route: 041
  25. MORPHINE [Suspect]
     Active Substance: MORPHINE
     Indication: Dystonia
     Dosage: 3 MG, Q6H
     Route: 048
  26. MORPHINE [Suspect]
     Active Substance: MORPHINE
     Indication: Dyskinesia
  27. KETAMINE [Suspect]
     Active Substance: KETAMINE
     Indication: Sedation
     Dosage: 5 UG/KG, QMN
     Route: 041
  28. KETAMINE [Suspect]
     Active Substance: KETAMINE
     Indication: Dystonia
     Route: 041
  29. KETAMINE [Suspect]
     Active Substance: KETAMINE
     Indication: Dyskinesia
     Route: 041

REACTIONS (5)
  - Respiratory failure [Recovered/Resolved]
  - Sedation complication [Recovered/Resolved]
  - Hypoventilation [Recovered/Resolved]
  - Hypotension [Recovered/Resolved]
  - Tachycardia [Recovered/Resolved]
